FAERS Safety Report 17423330 (Version 1)
Quarter: 2020Q1

REPORT INFORMATION
  Report Type: Spontaneous
  Country: US (occurrence: US)
  Receive Date: 20200217
  Receipt Date: 20200217
  Transmission Date: 20200409
  Serious: Yes (Death, Other)
  Sender: FDA-Public Use
  Company Number: US-AMGEN-USASP2020024611

PATIENT
  Age: 61 Year
  Sex: Male

DRUGS (7)
  1. MITOXANTRONE [Concomitant]
     Active Substance: MITOXANTRONE HYDROCHLORIDE
  2. BLINATUMOMAB [Suspect]
     Active Substance: BLINATUMOMAB
     Indication: B PRECURSOR TYPE ACUTE LEUKAEMIA
     Dosage: UNK
     Route: 065
  3. ANAKINRA [Concomitant]
     Active Substance: ANAKINRA
  4. TOCILIZUMAB. [Concomitant]
     Active Substance: TOCILIZUMAB
  5. INOTUZUMAB [Concomitant]
     Active Substance: INOTUZUMAB OZOGAMICIN
  6. CYTARABINE. [Concomitant]
     Active Substance: CYTARABINE
  7. LAROTRECTINIB [Concomitant]
     Active Substance: LAROTRECTINIB

REACTIONS (4)
  - Aspergillus infection [Fatal]
  - Acute lymphocytic leukaemia recurrent [Recovering/Resolving]
  - Drug ineffective [Unknown]
  - Gene mutation [Unknown]
